FAERS Safety Report 4637743-0 (Version None)
Quarter: 2005Q2

REPORT INFORMATION
  Report Type: 
  Country: None (occurrence: None)
  Receive Date: 20050418
  Receipt Date: 20041228
  Transmission Date: 20051028
  Serious: Yes (Death, Hospitalization, Other)
  Sender: FDA-Public Use
  Company Number: US-MERCK-0412USA03191

PATIENT
  Age: 65 Year
  Sex: Male
  Weight: 96 kg

DRUGS (13)
  1. VIOXX [Suspect]
     Indication: ARTHRITIS
     Route: 048
     Dates: start: 20000817, end: 20020927
  2. VIOXX [Suspect]
     Route: 048
     Dates: start: 20000817, end: 20020927
  3. ATUSS EX [Concomitant]
     Route: 065
  4. NEURONTIN [Concomitant]
     Indication: PAIN
     Route: 065
     Dates: start: 20010421, end: 20020911
  5. DILANTIN [Concomitant]
     Indication: PAIN
     Route: 065
  6. DILANTIN [Concomitant]
     Indication: TREMOR
     Route: 065
  7. VITAMIN B (UNSPECIFIED) [Concomitant]
     Route: 065
  8. DIOVAN [Concomitant]
     Indication: HYPERTENSION
     Route: 065
     Dates: start: 20020913
  9. DARVOCET-N 100 [Concomitant]
     Indication: PAIN
     Route: 065
     Dates: start: 20020913, end: 20020913
  10. NAPROSYN [Concomitant]
     Indication: PAIN
     Route: 065
     Dates: end: 20010321
  11. NAPROSYN [Concomitant]
     Route: 065
     Dates: start: 20020913, end: 20020913
  12. ALLEGRA [Concomitant]
     Route: 065
  13. CLEMASTINE [Concomitant]
     Route: 065

REACTIONS (6)
  - CEREBROVASCULAR ACCIDENT [None]
  - DIABETES MELLITUS [None]
  - EMOTIONAL DISTRESS [None]
  - HYPERCHOLESTEROLAEMIA [None]
  - HYPERTENSION [None]
  - MYOCARDIAL INFARCTION [None]
